FAERS Safety Report 4893487-1 (Version None)
Quarter: 2006Q1

REPORT INFORMATION
  Report Type: 
  Country: None (occurrence: None)
  Receive Date: 20060127
  Receipt Date: 20050810
  Transmission Date: 20060701
  Serious: No
  Sender: FDA-Public Use
  Company Number: US-BRISTOL-MYERS SQUIBB COMPANY-13072533

PATIENT
  Sex: Male

DRUGS (1)
  1. KENALOG-10 [Suspect]
     Route: 030

REACTIONS (1)
  - PSYCHOTIC DISORDER [None]
